FAERS Safety Report 4786902-5 (Version None)
Quarter: 2005Q3

REPORT INFORMATION
  Report Type: 
  Country: None (occurrence: None)
  Receive Date: 20050930
  Receipt Date: 20050914
  Transmission Date: 20060218
  Serious: Yes (Death)
  Sender: FDA-Public Use
  Company Number: 2005S1008449

PATIENT
  Age: 84 Year
  Sex: Female
  Weight: 43.0917 kg

DRUGS (1)
  1. FENTANYL [Suspect]
     Indication: PAIN
     Dosage: 25 MCG/HR; Q3D; TDER
     Route: 062
     Dates: start: 20050816

REACTIONS (1)
  - DEATH [None]
